FAERS Safety Report 6498287-7 (Version None)
Quarter: 2009Q4

REPORT INFORMATION
  Report Type: 
  Country: None (occurrence: None)
  Receive Date: 20091127
  Receipt Date: 20090504
  Transmission Date: 20100525
  Serious: Yes (Hospitalization)
  Sender: FDA-Public Use
  Company Number: 285845

PATIENT
  Age: 12 Year
  Sex: Female
  Weight: 34 kg

DRUGS (2)
  1. NOVOLOG [Suspect]
     Indication: TYPE 1 DIABETES MELLITUS
     Dosage: SLIDING SCALE SUBCUTANEOUS
     Route: 058
     Dates: start: 20080303, end: 20090401
  2. LANTUS [Suspect]
     Indication: TYPE 1 DIABETES MELLITUS
     Dosage: SUBCUTANEOUS
     Route: 058
     Dates: start: 20090301

REACTIONS (1)
  - HYPOGLYCAEMIA [None]
